FAERS Safety Report 9716796 (Version 2)
Quarter: 2013Q4

REPORT INFORMATION
  Report Type: Spontaneous
  Country: FR (occurrence: FR)
  Receive Date: 20131127
  Receipt Date: 20131202
  Transmission Date: 20140711
  Serious: Yes (Hospitalization, Other)
  Sender: FDA-Public Use
  Company Number: FR-PFIZER INC-2013332334

PATIENT
  Age: 61 Year
  Sex: Male

DRUGS (14)
  1. XALKORI [Suspect]
     Indication: LUNG ADENOCARCINOMA
     Dosage: 250 MG, 2X/DAY
     Route: 048
     Dates: start: 20120615, end: 20130929
  2. TRAMADOL [Concomitant]
  3. KEPPRA [Concomitant]
  4. URBANYL [Concomitant]
  5. TRANXENE [Concomitant]
  6. INNOHEP [Concomitant]
  7. TAZOCILLINE [Concomitant]
  8. CIFLOX [Concomitant]
  9. PARACETAMOL [Concomitant]
  10. SKENAN [Concomitant]
  11. ACTISKENAN [Concomitant]
  12. FORLAX [Concomitant]
  13. ATROVENT [Concomitant]
  14. LOVENOX [Concomitant]

REACTIONS (2)
  - Agranulocytosis [Recovered/Resolved with Sequelae]
  - Bronchitis [Unknown]
